FAERS Safety Report 14175839 (Version 1)
Quarter: 2017Q4

REPORT INFORMATION
  Report Type: Spontaneous
  Country: US (occurrence: US)
  Receive Date: 20171109
  Receipt Date: 20171109
  Transmission Date: 20180321
  Serious: Yes (Other)
  Sender: FDA-Public Use
  Company Number: US-MYLANLABS-2017M1069889

PATIENT
  Sex: Female

DRUGS (12)
  1. TACROLIMUS. [Suspect]
     Active Substance: TACROLIMUS
     Indication: IMMUNOSUPPRESSANT DRUG THERAPY
     Route: 065
  2. MYCOPHENOLATE MOFETIL. [Suspect]
     Active Substance: MYCOPHENOLATE MOFETIL
     Indication: IMMUNOSUPPRESSANT DRUG THERAPY
     Route: 065
  3. NIVOLUMAB [Suspect]
     Active Substance: NIVOLUMAB
     Indication: METASTATIC SQUAMOUS CELL CARCINOMA
     Route: 065
     Dates: start: 201511, end: 201604
  4. CETUXIMAB. [Concomitant]
     Active Substance: CETUXIMAB
     Indication: METASTATIC SQUAMOUS CELL CARCINOMA
     Route: 065
  5. FLUOROURACIL. [Concomitant]
     Active Substance: FLUOROURACIL
     Indication: SQUAMOUS CELL CARCINOMA OF SKIN
     Route: 061
     Dates: start: 2004
  6. ERLOTINIB [Concomitant]
     Active Substance: ERLOTINIB
     Indication: METASTATIC SQUAMOUS CELL CARCINOMA
     Route: 065
  7. PREDNISONE. [Suspect]
     Active Substance: PREDNISONE
     Indication: IMMUNOSUPPRESSANT DRUG THERAPY
     Dosage: INITIAL DOSAGE WAS UNKNOWN AND THEN RECEIVED AT 5MG DAILY
     Route: 065
  8. INTERFERON [Concomitant]
     Active Substance: INTERFERON
     Indication: METASTATIC SQUAMOUS CELL CARCINOMA
     Route: 065
  9. PALBOCICLIB [Concomitant]
     Active Substance: PALBOCICLIB
     Indication: METASTATIC SQUAMOUS CELL CARCINOMA
     Route: 065
  10. ANTITHYMOCYTE IMMUNOGLOBULIN [Suspect]
     Active Substance: THYMOCYTE IMMUNE GLOBULIN NOS
     Indication: IMMUNOSUPPRESSANT DRUG THERAPY
     Route: 065
  11. SIROLIMUS. [Concomitant]
     Active Substance: SIROLIMUS
     Indication: IMMUNOSUPPRESSANT DRUG THERAPY
     Route: 065
  12. CAPECITABINE. [Concomitant]
     Active Substance: CAPECITABINE
     Indication: METASTATIC SQUAMOUS CELL CARCINOMA
     Route: 065
     Dates: start: 2010

REACTIONS (6)
  - Autoimmune disorder [Recovering/Resolving]
  - Metastatic squamous cell carcinoma [Recovering/Resolving]
  - Metastases to lymph nodes [Recovering/Resolving]
  - Pneumonitis [Recovering/Resolving]
  - Squamous cell carcinoma of skin [Recovering/Resolving]
  - Metastases to lung [Recovering/Resolving]

NARRATIVE: CASE EVENT DATE: 200908
